FAERS Safety Report 5147039-9 (Version None)
Quarter: 2006Q4

REPORT INFORMATION
  Report Type: 
  Country: None (occurrence: None)
  Receive Date: 20061103
  Receipt Date: 20061019
  Transmission Date: 20070319
  Serious: Yes (Hospitalization)
  Sender: FDA-Public Use
  Company Number: KADN20060040

PATIENT
  Age: 27 Year
  Sex: Male

DRUGS (15)
  1. MORPHINE [Suspect]
     Indication: PROCEDURAL PAIN
     Dosage: 10 MG ONCE IV
     Route: 042
  2. MORPHINE [Suspect]
     Indication: PROCEDURAL PAIN
  3. ACETAMINOPHEN [Concomitant]
  4. DICLOFENAC SODIUM [Concomitant]
  5. LIDOCAINE [Concomitant]
  6. BUPIVACAINE [Concomitant]
  7. EPHEDRINE [Concomitant]
  8. MIDAZOLAM [Concomitant]
  9. MANNITOL [Concomitant]
  10. CEFAZOLIN [Concomitant]
  11. NADROPARIN [Concomitant]
  12. GENTAMICIN [Concomitant]
  13. DEXAMETHASONE TAB [Concomitant]
  14. CEFUROXIME [Concomitant]
  15. METRONIDAZOLE [Concomitant]

REACTIONS (8)
  - ACUTE GENERALISED EXANTHEMATOUS PUSTULOSIS [None]
  - ALANINE AMINOTRANSFERASE INCREASED [None]
  - ASPARTATE AMINOTRANSFERASE INCREASED [None]
  - LYMPHOCYTE TRANSFORMATION TEST POSITIVE [None]
  - SKIN EXFOLIATION [None]
  - SKIN GRAFT [None]
  - SKIN TEST POSITIVE [None]
  - TOXIC SHOCK SYNDROME [None]
